FAERS Safety Report 10444251 (Version 1)
Quarter: 2014Q3

REPORT INFORMATION
  Report Type: Spontaneous
  Country: IN (occurrence: None)
  Receive Date: 20140908
  Receipt Date: 20140908
  Transmission Date: 20150326
  Serious: Yes (Other)
  Sender: FDA-Public Use
  Company Number: 2523288

PATIENT
  Age: 62 Year
  Sex: Female

DRUGS (3)
  1. LIDOCAINE W/EPINEPHRINE [Suspect]
     Active Substance: EPINEPHRINE\LIDOCAINE
     Indication: EPIDURAL TEST DOSE
     Dosage: 3 ML MILLILITRES UNKNOWN, EPIDURAL
     Route: 008
  2. BUPIVACAINE [Concomitant]
     Active Substance: BUPIVACAINE
  3. DEXMEDETOMIDINE HYDROCHLORIDE [Suspect]
     Active Substance: DEXMEDETOMIDINE HYDROCHLORIDE
     Indication: EPIDURAL ANAESTHESIA
     Dosage: NOT REPORTED, UNKNOWN, EPIDURAL
     Route: 008

REACTIONS (8)
  - Miosis [None]
  - Unresponsive to stimuli [None]
  - Hypotension [None]
  - Sedation [None]
  - Bradycardia [None]
  - Brain stem haemorrhage [None]
  - Hypertension [None]
  - Off label use [None]
